FAERS Safety Report 7068746-7 (Version None)
Quarter: 2010Q4

REPORT INFORMATION
  Report Type: 
  Country: None (occurrence: None)
  Receive Date: 20101028
  Receipt Date: 20101019
  Transmission Date: 20110411
  Serious: Yes (Hospitalization)
  Sender: FDA-Public Use
  Company Number: IT-PFIZER INC-2010132912

PATIENT
  Age: 76 Year
  Sex: Male

DRUGS (3)
  1. CAMPTOSAR [Suspect]
     Indication: COLON CANCER
     Dosage: 296 MG, CYCLIC
     Route: 042
     Dates: start: 20070226, end: 20070309
  2. FLUOROURACIL [Suspect]
     Dosage: 2640 MG, CYCLIC
     Route: 042
     Dates: start: 20070226, end: 20070309
  3. CALCIUM LEVOFOLINATE [Concomitant]
     Dosage: 165 MG
     Route: 042

REACTIONS (1)
  - HERPES ZOSTER [None]
